FAERS Safety Report 23307045 (Version 1)
Quarter: 2023Q4

REPORT INFORMATION
  Report Type: Spontaneous
  Country: US (occurrence: US)
  Receive Date: 20231218
  Receipt Date: 20231218
  Transmission Date: 20240110
  Serious: No
  Sender: FDA-Public Use
  Company Number: US-RECKITT BENCKISER HEALTHCARE INT LIMITED-RB-088596-2023

PATIENT
  Age: 1 Year
  Sex: Male

DRUGS (1)
  1. DELSYM AND CHILDRENS DELSYM [Suspect]
     Active Substance: DEXTROMETHORPHAN
     Indication: Product used for unknown indication
     Dosage: 1 DOSAGE FORM, QD.
     Route: 048
     Dates: start: 20230304

REACTIONS (2)
  - Balance disorder [Recovered/Resolved]
  - Product administered to patient of inappropriate age [Recovered/Resolved]
